FAERS Safety Report 8587755-X (Version None)
Quarter: 2012Q3

REPORT INFORMATION
  Report Type: 
  Country: None (occurrence: None)
  Receive Date: 20120813
  Receipt Date: 20120808
  Transmission Date: 20120928
  Serious: Yes (Other)
  Sender: FDA-Public Use
  Company Number: US-AMGEN-USASP2012049905

PATIENT
  Age: 33 Year
  Sex: Female

DRUGS (3)
  1. NPLATE [Suspect]
     Indication: IDIOPATHIC THROMBOCYTOPENIC PURPURA
     Dosage: 1250 MUG, QWK
     Dates: start: 20090520
  2. PREDNISONE TAB [Concomitant]
  3. CORTICOSTEROIDS [Concomitant]

REACTIONS (8)
  - BONE MARROW RETICULIN FIBROSIS [None]
  - ANAEMIA [None]
  - PLATELET COUNT DECREASED [None]
  - WHITE BLOOD CELL COUNT INCREASED [None]
  - MENORRHAGIA [None]
  - GASTROINTESTINAL HAEMORRHAGE [None]
  - NEUTROPHILIA [None]
  - LEUKOERYTHROBLASTOSIS [None]
